FAERS Safety Report 4333986-4 (Version None)
Quarter: 2004Q2

REPORT INFORMATION
  Report Type: 
  Country: None (occurrence: None)
  Receive Date: 20040402
  Receipt Date: 20040323
  Transmission Date: 20050107
  Serious: Yes (Death, Hospitalization, Other)
  Sender: FDA-Public Use
  Company Number: 2003125244

PATIENT

DRUGS (4)
  1. VFEND [Suspect]
     Indication: ANTIFUNGAL PROPHYLAXIS
     Dosage: INTRAVENOUS
     Route: 042
  2. ANTIFUNGALS [Concomitant]
  3. CASPOFUNGIN (CASPOFUNGIN) [Concomitant]
  4. ITRACONAZOLE [Concomitant]

REACTIONS (2)
  - BRONCHOPULMONARY ASPERGILLOSIS [None]
  - INFECTION [None]
